FAERS Safety Report 15398285 (Version 1)
Quarter: 2018Q3

REPORT INFORMATION
  Report Type: Spontaneous
  Country: US (occurrence: US)
  Receive Date: 20180918
  Receipt Date: 20180918
  Transmission Date: 20181010
  Serious: Yes (Hospitalization)
  Sender: FDA-Public Use
  Company Number: US-JNJFOC-20180918308

PATIENT
  Age: 86 Year
  Sex: Male

DRUGS (7)
  1. ROSUVASTATIN. [Concomitant]
     Active Substance: ROSUVASTATIN
  2. FINASTERIDE. [Concomitant]
     Active Substance: FINASTERIDE
  3. LEVOTHYROXINE. [Concomitant]
     Active Substance: LEVOTHYROXINE
  4. LATANOPROST. [Concomitant]
     Active Substance: LATANOPROST
  5. TAMSULOSIN [Concomitant]
     Active Substance: TAMSULOSIN
  6. OFLOXACIN. [Concomitant]
     Active Substance: OFLOXACIN
     Route: 065
  7. IMBRUVICA [Suspect]
     Active Substance: IBRUTINIB
     Indication: PRODUCT USED FOR UNKNOWN INDICATION
     Route: 048
     Dates: end: 20180906

REACTIONS (2)
  - Hospitalisation [Unknown]
  - Drug ineffective [Unknown]

NARRATIVE: CASE EVENT DATE: 20180905
